FAERS Safety Report 6292412-9 (Version None)
Quarter: 2009Q3

REPORT INFORMATION
  Report Type: 
  Country: None (occurrence: None)
  Receive Date: 20090731
  Receipt Date: 20090728
  Transmission Date: 20100115
  Serious: Yes (Death)
  Sender: FDA-Public Use
  Company Number: PHHY2009SA31350

PATIENT
  Age: 16 Year
  Sex: Male

DRUGS (6)
  1. CYCLOSPORINE [Suspect]
     Indication: BONE MARROW TRANSPLANT
     Dosage: UNK
     Route: 042
     Dates: start: 20050101
  2. CYCLOSPORINE [Suspect]
     Indication: PROPHYLAXIS AGAINST GRAFT VERSUS HOST DISEASE
  3. PREDNISONE [Suspect]
     Indication: BONE MARROW TRANSPLANT
     Dosage: 2 MG/KG, UNK
  4. PREDNISONE [Suspect]
     Indication: GRAFT VERSUS HOST DISEASE
     Dosage: 4 MG/KG, UNK
  5. INFLIXIMAB [Concomitant]
     Indication: BILIRUBIN CONJUGATED INCREASED
  6. INFLIXIMAB [Concomitant]
     Indication: TRANSAMINASES INCREASED

REACTIONS (3)
  - ASPERGILLOSIS [None]
  - DIARRHOEA HAEMORRHAGIC [None]
  - HAEMATEMESIS [None]
